FAERS Safety Report 5141078-X (Version None)
Quarter: 2006Q4

REPORT INFORMATION
  Report Type: 
  Country: None (occurrence: None)
  Receive Date: 20061026
  Receipt Date: 20061013
  Transmission Date: 20070319
  Serious: Yes (Hospitalization)
  Sender: FDA-Public Use
  Company Number: 2006126715

PATIENT
  Age: 12 Year
  Sex: Male

DRUGS (1)
  1. COOL MINT LISTERINE (MENTHOL, METHYL SALICYLATE, EUCALYPTOL, THYMOL) [Suspect]
     Indication: BREATH ODOUR
     Dosage: 20 ML, ORAL
     Route: 048

REACTIONS (4)
  - ACCIDENTAL EXPOSURE [None]
  - DUODENITIS [None]
  - INCORRECT ROUTE OF DRUG ADMINISTRATION [None]
  - OESOPHAGITIS [None]
